FAERS Safety Report 17873206 (Version 1)
Quarter: 2020Q2

REPORT INFORMATION
  Report Type: Spontaneous
  Country: US (occurrence: US)
  Receive Date: 20200608
  Receipt Date: 20200608
  Transmission Date: 20200714
  Serious: No
  Sender: FDA-Public Use
  Company Number: US-OSMOTICA_PHARMACEUTICAL_US_LLC-POI0573202000281

PATIENT
  Age: 55 Year
  Sex: Female

DRUGS (6)
  1. XANAX [Concomitant]
     Active Substance: ALPRAZOLAM
     Indication: ANXIETY
  2. CARBIDOPA LEVODOPA [Concomitant]
     Active Substance: CARBIDOPA\LEVODOPA
     Indication: PARKINSON^S DISEASE
  3. OSMOLEX ER [Suspect]
     Active Substance: AMANTADINE
     Dates: start: 20200330
  4. OSMOLEX ER [Suspect]
     Active Substance: AMANTADINE
     Indication: DYSKINESIA
     Dates: start: 202003, end: 20200329
  5. MUCUNA [Concomitant]
     Indication: PRODUCT USED FOR UNKNOWN INDICATION
  6. TIGAN [Concomitant]
     Active Substance: TRIMETHOBENZAMIDE HYDROCHLORIDE
     Indication: PRODUCT USED FOR UNKNOWN INDICATION

REACTIONS (2)
  - Weight decreased [Unknown]
  - Asthenia [Not Recovered/Not Resolved]

NARRATIVE: CASE EVENT DATE: 202003
